FAERS Safety Report 6765437-4 (Version None)
Quarter: 2010Q2

REPORT INFORMATION
  Report Type: 
  Country: None (occurrence: None)
  Receive Date: 20100609
  Receipt Date: 20100527
  Transmission Date: 20101027
  Serious: Yes (Life-Threatening, Other)
  Sender: FDA-Public Use
  Company Number: ACO_00963_2010

PATIENT
  Sex: Male
  Weight: 72.5755 kg

DRUGS (11)
  1. AMPYRA [Suspect]
     Indication: MULTIPLE SCLEROSIS
     Dosage: 10 MG, BID, ORAL
     Route: 048
     Dates: start: 20100514
  2. ENABLEX [Concomitant]
  3. MIRALAX [Concomitant]
  4. IMITREX [Concomitant]
  5. CITALOPRAM HYDROBROMIDE [Concomitant]
  6. DILTIAZEM [Concomitant]
  7. SIMVASTATIN [Concomitant]
  8. FLOMAX [Concomitant]
  9. BACLOFEN [Concomitant]
  10. HYDROCHLOROTHIAZIDE [Concomitant]
  11. NALTREXONE HYDROCHLORIDE [Concomitant]

REACTIONS (3)
  - CENTRAL NERVOUS SYSTEM LESION [None]
  - DEPRESSION [None]
  - SUICIDAL IDEATION [None]
